FAERS Safety Report 19713054 (Version 1)
Quarter: 2021Q3

REPORT INFORMATION
  Report Type: Spontaneous
  Country: US (occurrence: US)
  Receive Date: 20210817
  Receipt Date: 20210817
  Transmission Date: 20211014
  Serious: Yes (Other)
  Sender: FDA-Public Use
  Company Number: None

PATIENT
  Age: 73 Year
  Sex: Female
  Weight: 47.25 kg

DRUGS (11)
  1. ESTRING [Concomitant]
     Active Substance: ESTRADIOL
  2. LEVOTHROID [Concomitant]
     Active Substance: LEVOTHYROXINE SODIUM
  3. LOSARTAN. [Concomitant]
     Active Substance: LOSARTAN
  4. CALCIUM [Concomitant]
     Active Substance: CALCIUM
  5. LOW STRENGTH ASPIRIN [Concomitant]
  6. MISOPROSTOL ? GENERIC VERSION OF CYTOTEC [Suspect]
     Active Substance: MISOPROSTOL
     Indication: BIOPSY CERVIX
     Dosage: ?          QUANTITY:2 TABLET(S);?
     Route: 067
     Dates: start: 20210808, end: 20210808
  7. ALENDRONATE [Concomitant]
     Active Substance: ALENDRONATE SODIUM
  8. ROSUVASTIN CALCIUM [Concomitant]
  9. VITAMIN B12 [Concomitant]
     Active Substance: CYANOCOBALAMIN
  10. VITAMIN D3 [Concomitant]
     Active Substance: CHOLECALCIFEROL
  11. AREDS 2 [Concomitant]
     Active Substance: MINERALS\VITAMINS

REACTIONS (7)
  - Body temperature increased [None]
  - Adverse reaction [None]
  - Tremor [None]
  - Vulvovaginal burning sensation [None]
  - Chills [None]
  - Asthenia [None]
  - Abdominal pain upper [None]

NARRATIVE: CASE EVENT DATE: 20210808
